FAERS Safety Report 14597329 (Version 1)
Quarter: 2018Q1

REPORT INFORMATION
  Report Type: Spontaneous
  Country: US (occurrence: US)
  Receive Date: 20180305
  Receipt Date: 20180305
  Transmission Date: 20180509
  Serious: No
  Sender: FDA-Public Use
  Company Number: US-AUROBINDO-AUR-APL-2017-30353

PATIENT
  Age: 89 Year
  Sex: Female

DRUGS (1)
  1. FELODIPINE EXTENDED-RELEASE TABLETS USP 5MG [Suspect]
     Active Substance: FELODIPINE
     Indication: BLOOD PRESSURE MEASUREMENT
     Dosage: 5 MG, UNK
     Route: 048

REACTIONS (1)
  - Dizziness [Unknown]
